FAERS Safety Report 15426939 (Version 1)
Quarter: 2018Q3

REPORT INFORMATION
  Report Type: Spontaneous
  Country: US (occurrence: US)
  Receive Date: 20180925
  Receipt Date: 20180925
  Transmission Date: 20181010
  Serious: No
  Sender: FDA-Public Use
  Company Number: US-INDIVIOR LIMITED-INDV-108669-2018

PATIENT
  Sex: Male

DRUGS (1)
  1. SUBOXONE [Suspect]
     Active Substance: BUPRENORPHINE HYDROCHLORIDE\NALOXONE HYDROCHLORIDE
     Indication: PRODUCT USED FOR UNKNOWN INDICATION
     Dosage: TAKING AS LITTLE AS NEEDED
     Route: 060

REACTIONS (4)
  - Drug effect incomplete [Unknown]
  - Wrong technique in product usage process [Unknown]
  - Pain [Unknown]
  - Product use issue [Unknown]

NARRATIVE: CASE EVENT DATE: 20180125
